FAERS Safety Report 15570382 (Version 1)
Quarter: 2018Q4

REPORT INFORMATION
  Report Type: Spontaneous
  Country: US (occurrence: US)
  Receive Date: 20181031
  Receipt Date: 20181031
  Transmission Date: 20190205
  Serious: Yes (Disabling)
  Sender: FDA-Public Use
  Company Number: None

PATIENT
  Age: 66 Year
  Sex: Male
  Weight: 106.2 kg

DRUGS (7)
  1. MULTI VITAMIN, [Concomitant]
  2. OMEPRAZOLE. [Concomitant]
     Active Substance: OMEPRAZOLE
  3. PRAMIPEXOLE DIHYDROCHLOR 1MG [Suspect]
     Active Substance: PRAMIPEXOLE DIHYDROCHLORIDE
     Indication: RESTLESS LEGS SYNDROME
     Dosage: ?          QUANTITY:2 TABLET(S);?
     Route: 048
     Dates: start: 20180712, end: 20180913
  4. AMINO ACID [Concomitant]
     Active Substance: AMINO ACIDS
  5. ,GLIMEPIRIDE [Concomitant]
  6. ATORVASTATIN CALCIUM. [Concomitant]
     Active Substance: ATORVASTATIN CALCIUM
  7. METFORMIN [Concomitant]
     Active Substance: METFORMIN HYDROCHLORIDE

REACTIONS (9)
  - Mental disorder [None]
  - Agitation [None]
  - Hyperhidrosis [None]
  - Impaired driving ability [None]
  - Tremor [None]
  - Muscle twitching [None]
  - Insomnia [None]
  - Self-injurious ideation [None]
  - Nausea [None]

NARRATIVE: CASE EVENT DATE: 20180713
